FAERS Safety Report 21955008 (Version 1)
Quarter: 2023Q1

REPORT INFORMATION
  Report Type: Other
  Country: US (occurrence: US)
  Receive Date: 20230206
  Receipt Date: 20230206
  Transmission Date: 20230417
  Serious: No
  Sender: FDA-Public Use
  Company Number: US-GBT-019735

PATIENT
  Sex: Female
  Weight: 64 kg

DRUGS (1)
  1. OXBRYTA [Suspect]
     Active Substance: VOXELOTOR
     Indication: Sickle cell disease
     Route: 065
     Dates: end: 202211

REACTIONS (3)
  - Gastrointestinal disorder [Unknown]
  - Therapy cessation [Unknown]
  - Off label use [Unknown]
